FAERS Safety Report 4314481-5 (Version None)
Quarter: 2004Q1

REPORT INFORMATION
  Report Type: 
  Country: None (occurrence: None)
  Receive Date: 20040309
  Receipt Date: 20040227
  Transmission Date: 20041129
  Serious: Yes (Other)
  Sender: FDA-Public Use
  Company Number: PHRM2004FR01014

PATIENT
  Sex: Female

DRUGS (2)
  1. FORADIL [Suspect]
     Indication: ASTHMA
     Dosage: 12 UG, QD
  2. MIFLASONE [Suspect]
     Indication: ASTHMA
     Dosage: 1 DF, QD

REACTIONS (4)
  - ABORTION INDUCED [None]
  - ANENCEPHALY [None]
  - COMPLICATIONS OF MATERNAL EXPOSURE TO THERAPEUTIC DRUGS [None]
  - DRUG EXPOSURE DURING PREGNANCY [None]
